FAERS Safety Report 25979071 (Version 1)
Quarter: 2025Q4

REPORT INFORMATION
  Report Type: Spontaneous
  Country: US (occurrence: US)
  Receive Date: 20251030
  Receipt Date: 20251030
  Transmission Date: 20260117
  Serious: No
  Sender: JOHNSON AND JOHNSON
  Company Number: US-JNJFOC-20251037071

PATIENT

DRUGS (2)
  1. SPRAVATO [Suspect]
     Active Substance: ESKETAMINE
     Indication: Product used for unknown indication
  2. SPRAVATO [Suspect]
     Active Substance: ESKETAMINE
     Dates: start: 20251024, end: 20251024

REACTIONS (4)
  - Incorrect dose administered [Unknown]
  - Malaise [Unknown]
  - Nausea [Unknown]
  - Discomfort [Unknown]

NARRATIVE: CASE EVENT DATE: 20251024
